FAERS Safety Report 19079237 (Version 4)
Quarter: 2022Q1

REPORT INFORMATION
  Report Type: Spontaneous
  Country: US (occurrence: US)
  Receive Date: 20210331
  Receipt Date: 20220310
  Transmission Date: 20220423
  Serious: Yes (Other)
  Sender: FDA-Public Use
  Company Number: US-PFIZER INC-2019100567

PATIENT
  Age: 74 Year
  Sex: Female

DRUGS (4)
  1. LYRICA [Suspect]
     Active Substance: PREGABALIN
     Indication: Diabetic neuropathy
     Dosage: 75 MG, FOUR TIMES A DAY
     Route: 048
     Dates: start: 20190227
  2. LYRICA [Suspect]
     Active Substance: PREGABALIN
     Dosage: 375 MG, DAILY (75 MG, 5 TIMES DAILY)
     Route: 048
     Dates: start: 2020
  3. LYRICA [Suspect]
     Active Substance: PREGABALIN
     Dosage: 375 MG DAILY (TAKE 1 TABLET, AS REPORTED, 5 TIMES DAILY)
     Dates: start: 20210322
  4. LYRICA [Suspect]
     Active Substance: PREGABALIN
     Dosage: 2 DF (2 CAPSULE 5 TIMES A DAY)

REACTIONS (2)
  - Myocardial infarction [Unknown]
  - Off label use [Unknown]

NARRATIVE: CASE EVENT DATE: 20200101
